FAERS Safety Report 7664330-2 (Version None)
Quarter: 2011Q3

REPORT INFORMATION
  Report Type: 
  Country: None (occurrence: None)
  Receive Date: 20110806
  Receipt Date: 20110121
  Transmission Date: 20111222
  Serious: No
  Sender: FDA-Public Use
  Company Number: US-ABBOTT-11P-163-0699734-00

PATIENT
  Sex: Male
  Weight: 104.42 kg

DRUGS (8)
  1. SIMVASTATIN [Concomitant]
     Indication: PRODUCT USED FOR UNKNOWN INDICATION
  2. NIASPAN [Suspect]
     Dosage: CUTTING PILL IN HALF
  3. METFORMIN HCL [Concomitant]
     Indication: PRODUCT USED FOR UNKNOWN INDICATION
  4. NIASPAN [Suspect]
     Indication: PRODUCT USED FOR UNKNOWN INDICATION
     Dosage: 1000MG AT BEDTIME
     Dates: start: 20040101
  5. ASPIRIN [Concomitant]
     Indication: PRODUCT USED FOR UNKNOWN INDICATION
  6. RAMIPRIL [Concomitant]
     Indication: PRODUCT USED FOR UNKNOWN INDICATION
  7. GLYBURIDE [Concomitant]
     Indication: PRODUCT USED FOR UNKNOWN INDICATION
  8. METOTORORIL [Concomitant]
     Indication: PRODUCT USED FOR UNKNOWN INDICATION

REACTIONS (2)
  - WRONG TECHNIQUE IN DRUG USAGE PROCESS [None]
  - FLUSHING [None]
